FAERS Safety Report 4545895-6 (Version None)
Quarter: 2005Q1

REPORT INFORMATION
  Report Type: 
  Country: None (occurrence: None)
  Receive Date: 20050103
  Receipt Date: 20041223
  Transmission Date: 20050727
  Serious: Yes (Death, Other)
  Sender: FDA-Public Use
  Company Number: 2004118858

PATIENT

DRUGS (3)
  1. VIAGRA [Suspect]
     Indication: ILL-DEFINED DISORDER
  2. COCAINE (COCAINE) [Suspect]
     Indication: ILL-DEFINED DISORDER
  3. CANNABIS (CANNABIS) [Suspect]
     Indication: ILL-DEFINED DISORDER

REACTIONS (1)
  - DRUG INTERACTION [None]
